FAERS Safety Report 5918128-3 (Version None)
Quarter: 2008Q4

REPORT INFORMATION
  Report Type: 
  Country: None (occurrence: None)
  Receive Date: 20081014
  Receipt Date: 20081010
  Transmission Date: 20090506
  Serious: Yes (Hospitalization)
  Sender: FDA-Public Use
  Company Number: US-B.I. PHARMACEUTICALS,INC./RIDGEFIELD-2008-BP-15653BP

PATIENT
  Age: 62 Year
  Sex: Female

DRUGS (6)
  1. MICARDIS [Suspect]
     Indication: HYPERTENSION
     Dosage: 80MG
     Route: 048
     Dates: start: 20020101
  2. BYETTA [Concomitant]
     Indication: DIABETES MELLITUS
  3. LYRICA [Concomitant]
     Indication: NEUROPATHY PERIPHERAL
  4. LIPITOR [Concomitant]
     Indication: BLOOD CHOLESTEROL INCREASED
  5. ESTROGENIC SUBSTANCE [Concomitant]
  6. M.V.I. [Concomitant]

REACTIONS (3)
  - LIPASE INCREASED [None]
  - MEDICATION ERROR [None]
  - RENAL CANCER [None]
